FAERS Safety Report 20689322 (Version 1)
Quarter: 2022Q2

REPORT INFORMATION
  Report Type: Spontaneous
  Country: US (occurrence: US)
  Receive Date: 20220408
  Receipt Date: 20220408
  Transmission Date: 20220721
  Serious: No
  Sender: FDA-Public Use
  Company Number: US-SA-SAC20220406000675

PATIENT
  Age: 21 Year
  Sex: Female
  Weight: 61 kg

DRUGS (2)
  1. DUPIXENT [Suspect]
     Active Substance: DUPILUMAB
     Indication: Asthma
     Dosage: 200MG/1.14ML
     Route: 058
     Dates: start: 202112, end: 20220219
  2. XOLAIR [Concomitant]
     Active Substance: OMALIZUMAB
     Indication: Asthma
     Dosage: 375 MG, Q4W

REACTIONS (1)
  - Drug exposure before pregnancy [Unknown]

NARRATIVE: CASE EVENT DATE: 20220301
